FAERS Safety Report 7774266-4 (Version None)
Quarter: 2011Q3

REPORT INFORMATION
  Report Type: 
  Country: None (occurrence: None)
  Receive Date: 20110921
  Receipt Date: 20110906
  Transmission Date: 20111222
  Serious: Yes (Hospitalization)
  Sender: FDA-Public Use
  Company Number: AUR-APL-2011-04720

PATIENT
  Age: 80 Year
  Sex: Female

DRUGS (9)
  1. RAMIPRIL [Concomitant]
  2. ZANEDIP (LERCANIDIPINE HYDROCHLORIDE) [Concomitant]
  3. ISOSORBIDE MONONITRATE [Concomitant]
  4. ASPIRIN [Concomitant]
  5. MODURETIC 5-50 [Concomitant]
  6. ATENOLOL [Suspect]
     Indication: ARRHYTHMIA
     Dosage: 50 MG, 1 D, ORAL
     Route: 048
     Dates: start: 20090101, end: 20110712
  7. AMIODAR (AMIODARONE HYDROCHLORIDE) [Concomitant]
  8. BELAZIP (BEZAFIBRATE) [Concomitant]
  9. ESOPRAL (ESOMEPRAZOLE) [Concomitant]

REACTIONS (2)
  - SINUS BRADYCARDIA [None]
  - ELECTROCARDIOGRAM QT PROLONGED [None]
